FAERS Safety Report 5877300-1 (Version None)
Quarter: 2008Q3

REPORT INFORMATION
  Report Type: 
  Country: None (occurrence: None)
  Receive Date: 20080910
  Receipt Date: 20080902
  Transmission Date: 20090109
  Serious: Yes (Hospitalization)
  Sender: FDA-Public Use
  Company Number: CM-MERCK-0809USA00568

PATIENT
  Age: 49 Year
  Sex: Male
  Weight: 72 kg

DRUGS (1)
  1. STROMECTOL [Suspect]
     Route: 048
     Dates: start: 20080521, end: 20080521

REACTIONS (6)
  - ASTHENIA [None]
  - FEELING COLD [None]
  - HEADACHE [None]
  - OCULAR HYPERAEMIA [None]
  - PAIN [None]
  - VERTIGO [None]
